FAERS Safety Report 11516885 (Version 2)
Quarter: 2015Q4

REPORT INFORMATION
  Report Type: Spontaneous
  Country: US (occurrence: US)
  Receive Date: 20150917
  Receipt Date: 20151007
  Transmission Date: 20160304
  Serious: Yes (Life-Threatening, Hospitalization, Other)
  Sender: FDA-Public Use
  Company Number: US-ELI_LILLY_AND_COMPANY-US201509004322

PATIENT
  Sex: Female

DRUGS (5)
  1. HUMULIN N [Suspect]
     Active Substance: INSULIN HUMAN
     Route: 065
  2. LEVEMIR [Concomitant]
     Active Substance: INSULIN DETEMIR
  3. METFORMIN [Concomitant]
     Active Substance: METFORMIN HYDROCHLORIDE
  4. HUMULIN N [Suspect]
     Active Substance: INSULIN HUMAN
     Indication: TYPE 2 DIABETES MELLITUS
     Dosage: 25 U, BID
     Route: 065
  5. HUMALOG [Suspect]
     Active Substance: INSULIN LISPRO
     Indication: TYPE 2 DIABETES MELLITUS
     Route: 065

REACTIONS (16)
  - Pneumonia [Unknown]
  - Increased insulin requirement [Unknown]
  - Feeling hot [Unknown]
  - Urinary tract infection [Unknown]
  - Malnutrition [Unknown]
  - Blood glucose abnormal [Unknown]
  - Heart rate increased [Unknown]
  - Lung neoplasm [Unknown]
  - Cerebrovascular accident [Unknown]
  - Ulcer [Unknown]
  - Cerebrovascular accident [Unknown]
  - Dementia Alzheimer^s type [Unknown]
  - Weight decreased [Unknown]
  - Lung infection [Unknown]
  - Oxygen saturation decreased [Unknown]
  - Blood glucose decreased [Unknown]

NARRATIVE: CASE EVENT DATE: 201506
